FAERS Safety Report 7253751-8 (Version None)
Quarter: 2011Q1

REPORT INFORMATION
  Report Type: 
  Country: None (occurrence: None)
  Receive Date: 20110129
  Receipt Date: 20100402
  Transmission Date: 20110831
  Serious: No
  Sender: FDA-Public Use
  Company Number: US-ABBOTT-10P-163-0623740-00

PATIENT
  Sex: Male
  Weight: 104.42 kg

DRUGS (5)
  1. HUMIRA [Suspect]
     Indication: PSORIATIC ARTHROPATHY
     Dates: start: 20100113
  2. METHOTREXATE [Concomitant]
     Indication: PRODUCT USED FOR UNKNOWN INDICATION
     Dosage: DOSE INCREASED RECENTLY TO 20MG DAILY
  3. PREDNISONE [Concomitant]
     Indication: PRODUCT USED FOR UNKNOWN INDICATION
  4. PREDNISONE [Suspect]
     Indication: PSORIATIC ARTHROPATHY
     Dosage: DAILY
     Dates: start: 20090101, end: 20100201
  5. PREDNISONE [Concomitant]

REACTIONS (5)
  - VISUAL ACUITY REDUCED [None]
  - OPTIC NERVE SHEATH HAEMORRHAGE [None]
  - ALTERED VISUAL DEPTH PERCEPTION [None]
  - RETINAL DISORDER [None]
  - EYE DISORDER [None]
